FAERS Safety Report 23880563 (Version 3)
Quarter: 2024Q4

REPORT INFORMATION
  Report Type: Spontaneous
  Country: JP (occurrence: JP)
  Receive Date: 20240521
  Receipt Date: 20241111
  Transmission Date: 20250115
  Serious: Yes (Hospitalization, Other)
  Sender: BRISTOL-MYERS SQUIBB COMPANY
  Company Number: JP-TAIHO-2024-004810

PATIENT
  Age: 65 Year
  Sex: Female
  Weight: 55 kg

DRUGS (12)
  1. ABRAXANE [Suspect]
     Active Substance: PACLITAXEL
     Indication: Pancreatic carcinoma metastatic
     Dosage: ON DAYS 1, 8, AND 15 OF EACH 28-DAY CYCLE DAILY DOSE: 190 MILLIGRAM(S)
     Route: 041
     Dates: start: 20150909
  2. ABRAXANE [Suspect]
     Active Substance: PACLITAXEL
     Dosage: ON DAYS 1, 8, AND 15 OF EACH 28-DAY CYCLE DAILY DOSE: 140 MILLIGRAM(S)
     Route: 041
     Dates: start: 20151028
  3. GEMCITABINE HYDROCHLORIDE [Suspect]
     Active Substance: GEMCITABINE HYDROCHLORIDE
     Indication: Pancreatic carcinoma metastatic
     Dosage: ON DAYS 1, 8, AND 15 OF EACH 28-DAY CYCLE DAILY DOSE: 1530 MILLIGRAM(S)
     Route: 041
     Dates: start: 20150909
  4. GEMCITABINE HYDROCHLORIDE [Suspect]
     Active Substance: GEMCITABINE HYDROCHLORIDE
     Dosage: ON DAYS 1, 8, AND 15 OF EACH 28-DAY CYCLE DAILY DOSE: 1180 MILLIGRAM(S)
     Route: 051
     Dates: end: 20151104
  5. PALONOSETRON HYDROCHLORIDE [Concomitant]
     Active Substance: PALONOSETRON HYDROCHLORIDE
     Indication: Product used for unknown indication
     Dosage: ON DAYS 1, 8, AND 15 OF EACH 28-DAY CYCLE?DAILY DOSE: 0.75 MILLIGRAM(S)
     Route: 051
     Dates: start: 20150909
  6. DECADRON [Concomitant]
     Active Substance: DEXAMETHASONE
     Indication: Pancreatic carcinoma metastatic
     Dosage: ON DAYS 1, 8, AND 15 OF EACH 28-DAY CYCLE DAILY DOSE: 6.6 MILLIGRAM(S)
     Route: 041
     Dates: start: 20150909, end: 20151104
  7. VONOPRAZAN [Concomitant]
     Active Substance: VONOPRAZAN
     Indication: Product used for unknown indication
     Route: 048
  8. CALONAL [Concomitant]
     Active Substance: ACETAMINOPHEN
     Indication: Cancer pain
     Route: 048
     Dates: start: 20150909
  9. MAGLAX [MAGNESIUM OXIDE] [Concomitant]
     Indication: Constipation
     Dates: start: 20151009
  10. CEFEPIME HYDROCHLORIDE [Concomitant]
     Active Substance: CEFEPIME HYDROCHLORIDE
     Indication: Product used for unknown indication
     Dates: start: 20150919, end: 20150924
  11. LANSOPRAZOLE [Concomitant]
     Active Substance: LANSOPRAZOLE
     Indication: Prophylaxis
  12. SULFAMETHOXAZOLE AND TRIMETHOPRIM [Concomitant]
     Active Substance: SULFAMETHOXAZOLE\TRIMETHOPRIM
     Indication: Prophylaxis

REACTIONS (13)
  - Hypophagia [Recovered/Resolved]
  - Neutrophil count decreased [Recovering/Resolving]
  - Constipation [Unknown]
  - Nausea [Unknown]
  - Mobility decreased [Recovered/Resolved]
  - Pyrexia [Unknown]
  - Pulmonary toxicity [Unknown]
  - Febrile neutropenia [Unknown]
  - Pneumonia [Recovered/Resolved]
  - Neuropathy peripheral [Unknown]
  - Oedema peripheral [Unknown]
  - Malaise [Unknown]
  - Decreased appetite [Unknown]

NARRATIVE: CASE EVENT DATE: 20150901
